FAERS Safety Report 24861092 (Version 1)
Quarter: 2025Q1

REPORT INFORMATION
  Report Type: Spontaneous
  Country: US (occurrence: US)
  Receive Date: 20250120
  Receipt Date: 20250120
  Transmission Date: 20250408
  Serious: No
  Sender: CURRAX PHARMACEUTICALS
  Company Number: US-CURRAX PHARMACEUTICALS LLC-US-2022CUR021250

PATIENT
  Age: 68 Year
  Sex: Female

DRUGS (1)
  1. CONTRAVE [Suspect]
     Active Substance: BUPROPION HYDROCHLORIDE\NALTREXONE HYDROCHLORIDE
     Indication: Weight control
     Dosage: STRENGTH: 8/90 MG,2 PILLS IN THE MORNING AND ONE PILL IN THE EVENING
     Route: 048
     Dates: start: 20220331

REACTIONS (8)
  - Musculoskeletal stiffness [Unknown]
  - Increased appetite [Unknown]
  - Product prescribing error [Unknown]
  - Drug titration error [Unknown]
  - Patient dissatisfaction with treatment [Unknown]
  - Product expiration date issue [Unknown]
  - Product lot number issue [Unknown]
  - Product dispensing error [Unknown]

NARRATIVE: CASE EVENT DATE: 20220331
